FAERS Safety Report 7100163-3 (Version None)
Quarter: 2010Q4

REPORT INFORMATION
  Report Type: 
  Country: None (occurrence: None)
  Receive Date: 20101112
  Receipt Date: 20100806
  Transmission Date: 20110411
  Serious: No
  Sender: FDA-Public Use
  Company Number: A0867427A

PATIENT
  Age: 70 Year
  Sex: Female
  Weight: 77.7 kg

DRUGS (8)
  1. CARVEDILOL [Suspect]
     Dosage: 6.25MG TWICE PER DAY
     Route: 048
     Dates: start: 20100301, end: 20100626
  2. DIOVAN [Concomitant]
  3. PLAVIX [Concomitant]
  4. NEXIUM [Concomitant]
  5. ZOCOR [Concomitant]
  6. GLIPIZIDE [Concomitant]
  7. LOVAZA [Concomitant]
  8. ALPRAZOLAM [Concomitant]

REACTIONS (8)
  - HYPERHIDROSIS [None]
  - HYPOAESTHESIA [None]
  - INCREASED TENDENCY TO BRUISE [None]
  - MICTURITION DISORDER [None]
  - MOOD SWINGS [None]
  - RASH [None]
  - SOMNOLENCE [None]
  - STOMATITIS [None]
